FAERS Safety Report 10548953 (Version 1)
Quarter: 2014Q4

REPORT INFORMATION
  Report Type: Spontaneous
  Country: US (occurrence: None)
  Receive Date: 20141015
  Receipt Date: 20141015
  Transmission Date: 20150529
  Serious: Yes (Other)
  Sender: FDA-Public Use
  Company Number: 2014US003410

PATIENT
  Age: 44 Year
  Sex: Male
  Weight: 99 kg

DRUGS (1)
  1. ICLUSIG [Suspect]
     Active Substance: PONATINIB
     Indication: CHRONIC MYELOID LEUKAEMIA
     Route: 048
     Dates: start: 20140616

REACTIONS (8)
  - Faeces discoloured [None]
  - Diarrhoea [None]
  - Musculoskeletal pain [None]
  - Lower respiratory tract infection [None]
  - Painful respiration [None]
  - Rash [None]
  - Localised infection [None]
  - Nausea [None]

NARRATIVE: CASE EVENT DATE: 201406
